FAERS Safety Report 8841285 (Version 3)
Quarter: 2012Q4

REPORT INFORMATION
  Report Type: 
  Country: CH (occurrence: CH)
  Receive Date: 20121016
  Receipt Date: 20121115
  Transmission Date: 20130627
  Serious: Yes (Hospitalization, Other)
  Sender: FDA-Public Use
  Company Number: CH-AMGEN-CHESP2012065144

PATIENT
  Age: 41 Year
  Sex: Male
  Weight: 50 kg

DRUGS (5)
  1. XGEVA [Suspect]
     Indication: PRODUCT USED FOR UNKNOWN INDICATION
     Dosage: 120 mg, one time dose
     Route: 058
     Dates: start: 20120822, end: 20120822
  2. CISPLATIN [Concomitant]
     Indication: NON-SMALL CELL LUNG CANCER
     Dosage: 115 mg, q3wk
     Route: 042
     Dates: start: 20120823
  3. ALIMTA [Concomitant]
     Indication: NON-SMALL CELL LUNG CANCER
     Dosage: 760 mg, q3wk
     Route: 042
     Dates: start: 20120823
  4. ACIDUM FOLICUM [Concomitant]
     Indication: NON-SMALL CELL LUNG CANCER
     Dosage: 5 mg, qd
     Route: 048
     Dates: start: 20120816
  5. CALCIMAGON D3 [Concomitant]
     Indication: HYPOCALCAEMIA
     Dosage: UNK UNK, bid
     Route: 048
     Dates: start: 20120816

REACTIONS (5)
  - Hypocalcaemia [Recovered/Resolved]
  - Muscle spasms [Recovering/Resolving]
  - Muscle twitching [Recovering/Resolving]
  - Electrocardiogram T wave amplitude increased [Unknown]
  - Back pain [Recovering/Resolving]
